FAERS Safety Report 8570278-1 (Version None)
Quarter: 2012Q3

REPORT INFORMATION
  Report Type: 
  Country: None (occurrence: None)
  Receive Date: 20120803
  Receipt Date: 20120725
  Transmission Date: 20120928
  Serious: Yes (Death, Other)
  Sender: FDA-Public Use
  Company Number: US-ROCHE-1087511

PATIENT
  Sex: Female

DRUGS (2)
  1. LUCENTIS [Suspect]
  2. LUCENTIS [Suspect]
     Indication: AGE-RELATED MACULAR DEGENERATION
     Route: 050
     Dates: start: 20090630, end: 20090731

REACTIONS (5)
  - NEUROPATHY PERIPHERAL [None]
  - DEATH [None]
  - RENAL FAILURE [None]
  - NEPHROPATHY [None]
  - DIABETES MELLITUS [None]
